FAERS Safety Report 25874444 (Version 1)
Quarter: 2025Q4

REPORT INFORMATION
  Report Type: Spontaneous
  Country: US (occurrence: US)
  Receive Date: 20251002
  Receipt Date: 20251002
  Transmission Date: 20260118
  Serious: Yes (Other)
  Sender: NOVARTIS
  Company Number: US-002147023-NVSC2025US151684

PATIENT
  Sex: Female

DRUGS (1)
  1. LEQVIO [Suspect]
     Active Substance: INCLISIRAN SODIUM
     Indication: Product used for unknown indication
     Dosage: 284 MG/1.5 ML
     Route: 065
     Dates: start: 20250911

REACTIONS (4)
  - Neuropathy peripheral [Unknown]
  - Arthralgia [Unknown]
  - Muscular weakness [Unknown]
  - Headache [Unknown]
